FAERS Safety Report 12269936 (Version 1)
Quarter: 2016Q2

REPORT INFORMATION
  Report Type: Spontaneous
  Country: GB (occurrence: GB)
  Receive Date: 20160415
  Receipt Date: 20160415
  Transmission Date: 20160815
  Serious: Yes (Other)
  Sender: FDA-Public Use
  Company Number: GB-009507513-1604GBR008009

PATIENT
  Age: 76 Year
  Sex: Female
  Weight: 74 kg

DRUGS (6)
  1. EZETIMIBE. [Suspect]
     Active Substance: EZETIMIBE
     Dosage: UNK
     Dates: start: 20150921
  2. GLICLAZIDE [Concomitant]
     Active Substance: GLICLAZIDE
     Dosage: WITH MAIN MEAL
     Dates: start: 20151113
  3. IRBESARTAN. [Concomitant]
     Active Substance: IRBESARTAN
     Dates: start: 20151113
  4. AMITRIPTYLINE HYDROCHLORIDE. [Concomitant]
     Active Substance: AMITRIPTYLINE HYDROCHLORIDE
     Dates: start: 20151113
  5. METFORMIN [Concomitant]
     Active Substance: METFORMIN HYDROCHLORIDE
     Dates: start: 20150703
  6. ATORVASTATIN [Concomitant]
     Active Substance: ATORVASTATIN
     Indication: BLOOD CHOLESTEROL INCREASED
     Dosage: AT NIGHT
     Dates: start: 20150703

REACTIONS (3)
  - Palpitations [Recovered/Resolved]
  - Hot flush [Unknown]
  - Rash [Unknown]

NARRATIVE: CASE EVENT DATE: 20150923
